FAERS Safety Report 16908675 (Version 1)
Quarter: 2019Q4

REPORT INFORMATION
  Report Type: Spontaneous
  Country: GB (occurrence: GB)
  Receive Date: 20191011
  Receipt Date: 20191011
  Transmission Date: 20200122
  Serious: Yes (Other)
  Sender: FDA-Public Use
  Company Number: GB-TEVA-2019-GB-1122020

PATIENT
  Age: 79 Year
  Sex: Male

DRUGS (2)
  1. ATORVASTATIN [Suspect]
     Active Substance: ATORVASTATIN
     Route: 065
     Dates: start: 2017
  2. QUININE [Suspect]
     Active Substance: QUININE
     Dosage: 600 MILLIGRAM DAILY;
     Route: 065
     Dates: start: 2017

REACTIONS (7)
  - Essential tremor [Unknown]
  - Product prescribing error [Unknown]
  - Cinchonism [Unknown]
  - Tremor [Unknown]
  - Immobile [Unknown]
  - Rhabdomyolysis [Unknown]
  - Depression [Unknown]

NARRATIVE: CASE EVENT DATE: 20170523
